FAERS Safety Report 23643973 (Version 1)
Quarter: 2024Q1

REPORT INFORMATION
  Report Type: Spontaneous
  Country: CN (occurrence: CN)
  Receive Date: 20240318
  Receipt Date: 20240318
  Transmission Date: 20240409
  Serious: Yes (Hospitalization)
  Sender: FDA-Public Use
  Company Number: CN-BAYER-2024A040182

PATIENT
  Age: 82 Year
  Sex: Female
  Weight: 49 kg

DRUGS (1)
  1. KERENDIA [Suspect]
     Active Substance: FINERENONE
     Indication: Protein urine absent
     Dosage: 20 MG, QD
     Route: 048
     Dates: start: 20230116, end: 20240314

REACTIONS (2)
  - Blood potassium increased [Recovering/Resolving]
  - Blood creatinine increased [Recovering/Resolving]

NARRATIVE: CASE EVENT DATE: 20240314
